FAERS Safety Report 9535243 (Version 2)
Quarter: 2013Q3

REPORT INFORMATION
  Report Type: Spontaneous
  Country: US (occurrence: US)
  Receive Date: 20130918
  Receipt Date: 20130918
  Transmission Date: 20140515
  Serious: Yes (Other)
  Sender: FDA-Public Use
  Company Number: US-PURDUE-USA-2012-0088448

PATIENT
  Sex: Male

DRUGS (3)
  1. INTERMEZZO [Suspect]
     Indication: INSOMNIA
     Dosage: 3.5 MG, SEE TEXT
     Route: 060
     Dates: start: 201205, end: 201205
  2. ANTIDEPRESSANTS [Concomitant]
     Indication: PRODUCT USED FOR UNKNOWN INDICATION
  3. BIPOLAR MEDICATION [Concomitant]
     Indication: PRODUCT USED FOR UNKNOWN INDICATION
     Dosage: UNK MG, UNK

REACTIONS (2)
  - Hallucination [Recovered/Resolved]
  - Nightmare [Recovered/Resolved]
